FAERS Safety Report 14236634 (Version 2)
Quarter: 2018Q1

REPORT INFORMATION
  Report Type: Report from Study
  Country: CO (occurrence: CO)
  Receive Date: 20171129
  Receipt Date: 20180101
  Transmission Date: 20180508
  Serious: Yes (Hospitalization, Other)
  Sender: FDA-Public Use
  Company Number: PHHY2017CO174953

PATIENT
  Sex: Male
  Weight: 80 kg

DRUGS (1)
  1. ENTRESTO [Suspect]
     Active Substance: SACUBITRIL\VALSARTAN
     Indication: CARDIAC FAILURE
     Dosage: 100 MG, Q12H
     Route: 048
     Dates: start: 20170911

REACTIONS (6)
  - Malaise [Unknown]
  - Gait inability [Unknown]
  - Asphyxia [Unknown]
  - Venous occlusion [Unknown]
  - Arterial occlusive disease [Unknown]
  - Exercise tolerance decreased [Unknown]
